FAERS Safety Report 16669835 (Version 1)
Quarter: 2019Q3

REPORT INFORMATION
  Report Type: Spontaneous
  Country: US (occurrence: US)
  Receive Date: 20190805
  Receipt Date: 20190805
  Transmission Date: 20191004
  Serious: Yes (Other)
  Sender: FDA-Public Use
  Company Number: US-PFIZER INC-2019329577

PATIENT
  Age: 30 Year
  Sex: Female
  Weight: 90.26 kg

DRUGS (1)
  1. EUCRISA [Suspect]
     Active Substance: CRISABOROLE
     Indication: ECZEMA
     Dosage: UNK

REACTIONS (5)
  - Throat tightness [Unknown]
  - Skin exfoliation [Unknown]
  - Urticaria [Unknown]
  - Acne [Unknown]
  - Drug hypersensitivity [Unknown]
